FAERS Safety Report 6754003-2 (Version None)
Quarter: 2010Q2

REPORT INFORMATION
  Report Type: 
  Country: None (occurrence: None)
  Receive Date: 20100603
  Receipt Date: 20100525
  Transmission Date: 20101027
  Serious: Yes (Other)
  Sender: FDA-Public Use
  Company Number: B0657122A

PATIENT

DRUGS (3)
  1. KIVEXA [Suspect]
     Indication: HIV INFECTION
  2. RITONAVIR [Suspect]
     Indication: HIV INFECTION
  3. ATAZANAVIR [Suspect]
     Indication: HIV INFECTION

REACTIONS (5)
  - CENTRAL NERVOUS SYSTEM LESION [None]
  - CENTRAL NERVOUS SYSTEM VIRAL INFECTION [None]
  - NEUROLOGICAL SYMPTOM [None]
  - PLEOCYTOSIS [None]
  - PROTEIN TOTAL INCREASED [None]
